FAERS Safety Report 12803329 (Version 3)
Quarter: 2017Q1

REPORT INFORMATION
  Report Type: Spontaneous
  Country: US (occurrence: US)
  Receive Date: 20161003
  Receipt Date: 20170130
  Transmission Date: 20170428
  Serious: Yes (Hospitalization, Other)
  Sender: FDA-Public Use
  Company Number: US-JNJFOC-20160929322

PATIENT
  Age: 61 Year
  Sex: Male

DRUGS (4)
  1. ZYDELIG [Concomitant]
     Active Substance: IDELALISIB
     Dates: start: 20161018
  2. IMBRUVICA [Suspect]
     Active Substance: IBRUTINIB
     Indication: CHRONIC LYMPHOCYTIC LEUKAEMIA
     Route: 048
     Dates: start: 201606, end: 20160903
  3. IMBRUVICA [Suspect]
     Active Substance: IBRUTINIB
     Indication: CHRONIC LYMPHOCYTIC LEUKAEMIA
     Route: 048
     Dates: start: 20160825
  4. IMBRUVICA [Suspect]
     Active Substance: IBRUTINIB
     Indication: CHRONIC LYMPHOCYTIC LEUKAEMIA
     Route: 048
     Dates: start: 20160919, end: 201610

REACTIONS (13)
  - Febrile neutropenia [Unknown]
  - Musculoskeletal pain [Recovering/Resolving]
  - Poisoning [Recovering/Resolving]
  - Pneumococcal sepsis [Unknown]
  - Neuropathy peripheral [Unknown]
  - Dyspepsia [Unknown]
  - Nausea [Unknown]
  - Insomnia [Not Recovered/Not Resolved]
  - Escherichia sepsis [Unknown]
  - Pyrexia [Recovering/Resolving]
  - Arthralgia [Unknown]
  - Chest pain [Unknown]
  - Oedema peripheral [Unknown]

NARRATIVE: CASE EVENT DATE: 20160903
